FAERS Safety Report 5191206-5 (Version None)
Quarter: 2006Q4

REPORT INFORMATION
  Report Type: 
  Country: None (occurrence: None)
  Receive Date: 20061220
  Receipt Date: 20061220
  Transmission Date: 20070319
  Serious: Yes (Life-Threatening, Hospitalization)
  Sender: FDA-Public Use
  Company Number: None

PATIENT
  Age: 60 Year
  Sex: Male
  Weight: 124.6938 kg

DRUGS (11)
  1. TIKOSYN [Suspect]
     Indication: ATRIAL FIBRILLATION
     Dosage: 500 MCG PO Q12H
     Route: 048
     Dates: start: 20060908, end: 20060909
  2. COUMADIN [Concomitant]
  3. REQUIP [Concomitant]
  4. TRAMADOL HCL [Concomitant]
  5. ZETIA [Concomitant]
  6. TORSEMIDE [Concomitant]
  7. METFORMIN HCL [Concomitant]
  8. OMEGA 3 FA [Concomitant]
  9. ALTACE [Concomitant]
  10. METOPROLOL SUCCINATE [Concomitant]
  11. INSULIN [Concomitant]

REACTIONS (2)
  - CARDIOVERSION [None]
  - TORSADE DE POINTES [None]
